FAERS Safety Report 23836213 (Version 2)
Quarter: 2024Q3

REPORT INFORMATION
  Report Type: Spontaneous
  Country: CA (occurrence: CA)
  Receive Date: 20240509
  Receipt Date: 20240703
  Transmission Date: 20241016
  Serious: Yes (Other)
  Sender: PFIZER
  Company Number: CA-PFIZER INC-202400102124

PATIENT
  Age: 40 Year
  Sex: Female

DRUGS (3)
  1. ABRILADA [Suspect]
     Active Substance: ADALIMUMAB-AFZB
     Indication: Crohn^s disease
     Dosage: 160 MG WEEK 0, 80 MG WEEK 2, THEN 40 MG Q 2 WEEKS STARTING WEEK 4
     Route: 058
     Dates: start: 20230412
  2. ABRILADA [Suspect]
     Active Substance: ADALIMUMAB-AFZB
     Dosage: 160 MG WEEK 0, 80 MG WEEK 2, THEN 40 MG Q 2 WEEKS STARTING WEEK 4
     Route: 058
     Dates: start: 20240502
  3. METHOTREXATE [Concomitant]
     Active Substance: METHOTREXATE
     Indication: Crohn^s disease
     Dosage: 1 DF, DOSAGE INFORMATION NOT PROVIDED
     Route: 065

REACTIONS (2)
  - Ileostomy [Unknown]
  - Arthralgia [Unknown]
